FAERS Safety Report 4769044-4 (Version None)
Quarter: 2005Q3

REPORT INFORMATION
  Report Type: 
  Country: None (occurrence: None)
  Receive Date: 20050913
  Receipt Date: 20050831
  Transmission Date: 20060218
  Serious: Yes (Death, Hospitalization)
  Sender: FDA-Public Use
  Company Number: GBWYE944331AUG05

PATIENT
  Age: 65 Year
  Sex: Female

DRUGS (10)
  1. MONOCOR (BISOPROLOL, TABLET) [Suspect]
     Dosage: 4 TABLETS ORAL
     Route: 048
  2. OMEPRAZOLE [Concomitant]
  3. VENTOLIN (SALBUTAMOL SULFATE) [Concomitant]
  4. AMIODARONE HCL [Concomitant]
  5. ASPIRIN [Concomitant]
  6. BECLOMETHASONE DIPROPIONATE (BECLOMETHASONE DIPROPIONATE) [Concomitant]
  7. METFORMIN HCL [Concomitant]
  8. THEOPHYLLINE [Concomitant]
  9. BUMETANIDE [Concomitant]
  10. LEVOTHYROXINE SODIUM [Concomitant]

REACTIONS (22)
  - BRADYCARDIA [None]
  - BUNDLE BRANCH BLOCK RIGHT [None]
  - CARDIOMEGALY [None]
  - CHRONIC OBSTRUCTIVE PULMONARY DISEASE [None]
  - COR PULMONALE [None]
  - DEHYDRATION [None]
  - DIARRHOEA [None]
  - DIZZINESS [None]
  - DRUG DISPENSING ERROR [None]
  - DRUG TOXICITY [None]
  - ELECTROCARDIOGRAM QT PROLONGED [None]
  - HEPATIC CONGESTION [None]
  - LOWER RESPIRATORY TRACT INFECTION [None]
  - MEDICATION ERROR [None]
  - METABOLIC ACIDOSIS [None]
  - NAUSEA [None]
  - PNEUMONIA [None]
  - PULMONARY SEPSIS [None]
  - RENAL FAILURE ACUTE [None]
  - RIGHT VENTRICULAR FAILURE [None]
  - THERAPY NON-RESPONDER [None]
  - VOMITING [None]
